FAERS Safety Report 7214245-9 (Version None)
Quarter: 2011Q1

REPORT INFORMATION
  Report Type: 
  Country: None (occurrence: None)
  Receive Date: 20110107
  Receipt Date: 20101230
  Transmission Date: 20110831
  Serious: Yes (Hospitalization)
  Sender: FDA-Public Use
  Company Number: US-ABBOTT-11P-163-0694575-00

PATIENT
  Sex: Male
  Weight: 59.02 kg

DRUGS (5)
  1. LISINOPRIL [Concomitant]
     Indication: HYPERTENSION
  2. HUMIRA [Suspect]
     Indication: RHEUMATOID ARTHRITIS
     Dates: start: 20060101
  3. CITALOPRAM [Concomitant]
     Indication: DEPRESSION
  4. KLOR-CON [Concomitant]
     Indication: MINERAL SUPPLEMENTATION
  5. CYMBICORT [Concomitant]
     Indication: CARDIAC FAILURE CONGESTIVE

REACTIONS (11)
  - MYOCARDIAL INFARCTION [None]
  - EJECTION FRACTION DECREASED [None]
  - DRUG LEVEL CHANGED [None]
  - ARRHYTHMIA [None]
  - COUGH [None]
  - CARDIAC FAILURE CONGESTIVE [None]
  - MASS [None]
  - PNEUMONIA [None]
  - ASTHENIA [None]
  - CELLULITIS [None]
  - PROSTATOMEGALY [None]
